FAERS Safety Report 8469304-X (Version None)
Quarter: 2012Q2

REPORT INFORMATION
  Report Type: 
  Country: None (occurrence: None)
  Receive Date: 20120620
  Receipt Date: 20120604
  Transmission Date: 20120825
  Serious: Yes (Other)
  Sender: FDA-Public Use
  Company Number: FK201201584

PATIENT
  Age: 66 Year
  Sex: Male

DRUGS (2)
  1. FLUDARABINE PHOSPHATE [Suspect]
     Indication: NEUROPATHY PERIPHERAL
     Dosage: DAILY: DAY 2-6
  2. RITUXIMAB (RITUXIMAB) [Suspect]
     Indication: NEUROPATHY PERIPHERAL
     Dosage: DAILY: EVERY WEEK: 4 CYCLES ; DAILY, DAY 1

REACTIONS (4)
  - AXONAL NEUROPATHY [None]
  - PAIN [None]
  - HYPOAESTHESIA [None]
  - DRUG RESISTANCE [None]
